FAERS Safety Report 25622774 (Version 1)
Quarter: 2025Q3

REPORT INFORMATION
  Report Type: Spontaneous
  Country: US (occurrence: None)
  Receive Date: 20250729
  Receipt Date: 20250729
  Transmission Date: 20251020
  Serious: Yes (Life-Threatening, Other)
  Sender: FDA-CTU
  Company Number: None

PATIENT
  Age: 35 Year
  Sex: Male
  Weight: 157.5 kg

DRUGS (1)
  1. METHYLCOBALAMIN\SEMAGLUTIDE [Suspect]
     Active Substance: METHYLCOBALAMIN\SEMAGLUTIDE
     Indication: Obesity
     Route: 050

REACTIONS (9)
  - Product label issue [None]
  - Product quality issue [None]
  - Eructation [None]
  - Abdominal distension [None]
  - Dyspepsia [None]
  - Abdominal distension [None]
  - Vomiting [None]
  - Dehydration [None]
  - Product substitution issue [None]

NARRATIVE: CASE EVENT DATE: 20250725
